FAERS Safety Report 8022933-X (Version None)
Quarter: 2012Q1

REPORT INFORMATION
  Report Type: 
  Country: None (occurrence: None)
  Receive Date: 20120104
  Receipt Date: 20120101
  Transmission Date: 20120608
  Serious: Yes (Death, Other)
  Sender: FDA-Public Use
  Company Number: PHHY2012US000462

PATIENT
  Sex: Male

DRUGS (2)
  1. GLEEVEC [Suspect]
     Indication: POLYCYTHAEMIA VERA
     Dosage: 400MG DAILY
  2. ASPIRIN [Concomitant]
     Dosage: 81 MG, DAILY

REACTIONS (3)
  - PLATELET COUNT DECREASED [None]
  - MYOCARDIAL INFARCTION [None]
  - LEFT VENTRICULAR HYPERTROPHY [None]
